FAERS Safety Report 5601319-9 (Version None)
Quarter: 2008Q1

REPORT INFORMATION
  Report Type: 
  Country: None (occurrence: None)
  Receive Date: 20080124
  Receipt Date: 20080121
  Transmission Date: 20080703
  Serious: Yes (Hospitalization)
  Sender: FDA-Public Use
  Company Number: B0504801A

PATIENT
  Age: 13 Year
  Sex: Male

DRUGS (4)
  1. AUGMENTIN '125' [Suspect]
     Indication: VIRAL INFECTION
     Dosage: 1870MG PER DAY
     Route: 048
     Dates: start: 20071204, end: 20071208
  2. AMBROXOL [Concomitant]
     Indication: VIRAL INFECTION
     Dates: start: 20071204, end: 20071208
  3. NUROFEN [Concomitant]
     Indication: VIRAL INFECTION
     Dates: start: 20071204, end: 20071208
  4. UNKNOWN DRUG [Concomitant]
     Indication: VIRAL INFECTION
     Dates: start: 20071204, end: 20071208

REACTIONS (2)
  - DRUG INEFFECTIVE [None]
  - LOBAR PNEUMONIA [None]
